FAERS Safety Report 5656150-5 (Version None)
Quarter: 2008Q1

REPORT INFORMATION
  Report Type: 
  Country: None (occurrence: None)
  Receive Date: 20080305
  Receipt Date: 20080220
  Transmission Date: 20080703
  Serious: Yes (Hospitalization)
  Sender: FDA-Public Use
  Company Number: 1-15806864

PATIENT
  Age: 80 Year
  Sex: Female
  Weight: 72.5755 kg

DRUGS (2)
  1. FENTANYL [Suspect]
     Indication: FIBROMYALGIA
     Dosage: 75MCG/HR EVERY 72 HRS,TRANSDERMAL
     Route: 062
     Dates: start: 20071012
  2. NUMEROUS UNSPECIFIED MEDICATIONS [Concomitant]

REACTIONS (3)
  - DISEASE COMPLICATION [None]
  - DYSPNOEA [None]
  - FIBROMYALGIA [None]
